FAERS Safety Report 12327272 (Version 1)
Quarter: 2016Q2

REPORT INFORMATION
  Report Type: Spontaneous
  Country: CA (occurrence: None)
  Receive Date: 20160502
  Receipt Date: 20160502
  Transmission Date: 20160815
  Serious: No
  Sender: FDA-Public Use
  Company Number: None

PATIENT
  Age: 5 Year
  Sex: Male
  Weight: 24 kg

DRUGS (21)
  1. DEXAMETHASONE. [Suspect]
     Active Substance: DEXAMETHASONE
     Dates: end: 20160330
  2. VINCRISTINE SULFATE. [Suspect]
     Active Substance: VINCRISTINE SULFATE
     Dates: end: 20160324
  3. METHOTREXATE [Suspect]
     Active Substance: METHOTREXATE
     Dates: end: 20160331
  4. CYCLIZINE [Concomitant]
     Active Substance: CYCLIZINE
  5. LORAZEPAM. [Concomitant]
     Active Substance: LORAZEPAM
  6. CYTARABINE. [Suspect]
     Active Substance: CYTARABINE
     Dates: end: 20160302
  7. GENTAMICIN. [Concomitant]
     Active Substance: GENTAMICIN
  8. METRONIDAZOLE. [Concomitant]
     Active Substance: METRONIDAZOLE
  9. RISPERIDONE. [Concomitant]
     Active Substance: RISPERIDONE
  10. TAZOCIN [Concomitant]
     Active Substance: PIPERACILLIN SODIUM\TAZOBACTAM SODIUM
  11. AMOXYCILLIN [Concomitant]
     Active Substance: AMOXICILLIN
  12. CEFTAZIDIME. [Concomitant]
     Active Substance: CEFTAZIDIME
  13. CIPROFLOXACIN. [Concomitant]
     Active Substance: CIPROFLOXACIN
  14. ONDANSETRON [Concomitant]
     Active Substance: ONDANSETRON
  15. PARACETAMOL [Concomitant]
     Active Substance: ACETAMINOPHEN
  16. AMPHOTERICIN [Concomitant]
     Active Substance: AMPHOTERICIN B
  17. FRUSEMIDE [Concomitant]
     Active Substance: FUROSEMIDE
  18. PANTOPRAZOLE [Concomitant]
     Active Substance: PANTOPRAZOLE SODIUM
  19. RANITIDINE. [Concomitant]
     Active Substance: RANITIDINE
  20. COTRIMOXAZOLE [Concomitant]
     Active Substance: SULFAMETHOXAZOLE\TRIMETHOPRIM
  21. FLUCONAZOLE. [Concomitant]
     Active Substance: FLUCONAZOLE

REACTIONS (9)
  - Hepatosplenomegaly [None]
  - Portal hypertension [None]
  - Sepsis [None]
  - Hepatosplenic candidiasis [None]
  - Hyperbilirubinaemia [None]
  - Liver function test abnormal [None]
  - Streptococcus test positive [None]
  - Enterobacter test positive [None]
  - Klebsiella test positive [None]

NARRATIVE: CASE EVENT DATE: 20160412
